FAERS Safety Report 17165684 (Version 1)
Quarter: 2019Q4

REPORT INFORMATION
  Report Type: Spontaneous
  Country: US (occurrence: US)
  Receive Date: 20191217
  Receipt Date: 20191217
  Transmission Date: 20200122
  Serious: Yes (Death)
  Sender: FDA-Public Use
  Company Number: US-PFIZER INC-2018067534

PATIENT
  Age: 71 Year
  Sex: Female

DRUGS (2)
  1. REVATIO [Suspect]
     Active Substance: SILDENAFIL CITRATE
     Dosage: 60 MG, 3X/DAY (20MG TABLET, 3 TABLETS THREE TIMES A DAY)
  2. REVATIO [Suspect]
     Active Substance: SILDENAFIL CITRATE
     Indication: ATRIAL FIBRILLATION
     Dosage: 20 MG, 3X/DAY

REACTIONS (3)
  - Death [Fatal]
  - Off label use [Unknown]
  - Product use in unapproved indication [Unknown]
